FAERS Safety Report 6869166-8 (Version None)
Quarter: 2010Q3

REPORT INFORMATION
  Report Type: 
  Country: None (occurrence: None)
  Receive Date: 20100722
  Receipt Date: 20080708
  Transmission Date: 20110219
  Serious: No
  Sender: FDA-Public Use
  Company Number: US-PFIZER INC-2008056535

PATIENT
  Sex: Female
  Weight: 38.6 kg

DRUGS (9)
  1. CHANTIX [Suspect]
     Indication: SMOKING CESSATION THERAPY
     Dates: start: 20070101
  2. CALCIUM WITH VITAMIN D [Concomitant]
  3. ACETYLSALICYLIC ACID [Concomitant]
  4. VITAMINS [Concomitant]
  5. RISPERDAL [Concomitant]
  6. SERTRALINE HCL [Concomitant]
  7. RAMIPRIL [Concomitant]
  8. METOPROLOL [Concomitant]
  9. EVISTA [Concomitant]

REACTIONS (1)
  - ABDOMINAL DISCOMFORT [None]
